FAERS Safety Report 21601741 (Version 1)
Quarter: 2022Q4

REPORT INFORMATION
  Report Type: Spontaneous
  Country: US (occurrence: None)
  Receive Date: 20221115
  Receipt Date: 20221115
  Transmission Date: 20230113
  Serious: Yes (Hospitalization)
  Sender: FDA-Public Use
  Company Number: None

PATIENT
  Age: 67 Year
  Sex: Female

DRUGS (9)
  1. OCREVUS [Suspect]
     Active Substance: OCRELIZUMAB
     Indication: Multiple sclerosis
     Route: 042
     Dates: start: 20171227
  2. ALBUTEROL SUP [Concomitant]
  3. ALLERGY RELF [Concomitant]
  4. CALCIUM [Concomitant]
     Active Substance: CALCIUM
  5. DALFAMPRIDINE [Concomitant]
     Active Substance: DALFAMPRIDINE
  6. FISH OIL [Concomitant]
     Active Substance: FISH OIL
  7. MULTIPLE VIT TAB [Concomitant]
  8. ORTHOVISC INJ [Concomitant]
  9. SINGULAIR GRA [Concomitant]

REACTIONS (2)
  - COVID-19 [None]
  - Pneumonia [None]

NARRATIVE: CASE EVENT DATE: 20221114
